FAERS Safety Report 6540575-X (Version None)
Quarter: 2010Q1

REPORT INFORMATION
  Report Type: 
  Country: None (occurrence: None)
  Receive Date: 20100113
  Receipt Date: 20100104
  Transmission Date: 20100710
  Serious: Yes (Other)
  Sender: FDA-Public Use
  Company Number: 2010SP000794

PATIENT
  Age: 64 Year
  Sex: Male

DRUGS (4)
  1. MIRTAZAPINE [Suspect]
     Indication: DEPRESSION
     Dosage: 15 MG;QD;PO ; 3.75 MG;QD;PO
     Route: 048
     Dates: start: 20090301, end: 20091201
  2. MIRTAZAPINE [Suspect]
     Indication: DEPRESSION
     Dosage: 15 MG;QD;PO ; 3.75 MG;QD;PO
     Route: 048
     Dates: start: 20091201
  3. CO-CODAMOL [Concomitant]
  4. DOSULEPIN [Concomitant]

REACTIONS (2)
  - ARRHYTHMIA [None]
  - CHEST PAIN [None]
